FAERS Safety Report 10207757 (Version 1)
Quarter: 2014Q2

REPORT INFORMATION
  Report Type: Spontaneous
  Country: US (occurrence: US)
  Receive Date: 20140530
  Receipt Date: 20140530
  Transmission Date: 20141212
  Serious: No
  Sender: FDA-Public Use
  Company Number: US-GLAXOSMITHKLINE-A1058265A

PATIENT
  Age: 54 Year
  Sex: Female

DRUGS (3)
  1. ALBUTEROL [Suspect]
     Indication: PRODUCT USED FOR UNKNOWN INDICATION
     Route: 055
  2. ADVAIR [Suspect]
     Indication: PRODUCT USED FOR UNKNOWN INDICATION
     Route: 055
     Dates: start: 2013
  3. NEBULIZER [Concomitant]

REACTIONS (8)
  - Lower limb fracture [Recovered/Resolved]
  - Upper limb fracture [Recovered/Resolved]
  - Accident [Recovered/Resolved]
  - Expired product administered [Unknown]
  - Drug administration error [Unknown]
  - Osteoporosis [Unknown]
  - Dysphonia [Recovering/Resolving]
  - Nasopharyngitis [Unknown]
